FAERS Safety Report 7300457-2 (Version None)
Quarter: 2011Q1

REPORT INFORMATION
  Report Type: 
  Country: None (occurrence: None)
  Receive Date: 20110217
  Receipt Date: 20110204
  Transmission Date: 20110831
  Serious: Yes (Hospitalization, Other)
  Sender: FDA-Public Use
  Company Number: PHHY2010JP88044

PATIENT
  Sex: Female
  Weight: 42 kg

DRUGS (22)
  1. METHOTREXATE [Concomitant]
     Indication: POLYMYOSITIS
     Dosage: 6 MG/WEEK
  2. PARIET [Concomitant]
     Dosage: 10 MG
     Route: 048
     Dates: start: 20090919, end: 20100419
  3. MUCOSOLVAN [Concomitant]
     Indication: PRODUCTIVE COUGH
     Dosage: 45 MG
     Route: 048
     Dates: start: 20090916, end: 20100413
  4. NEORAL [Suspect]
     Indication: POLYMYOSITIS
     Dosage: UNK
     Dates: start: 20100101, end: 20100101
  5. PREDNISOLONE [Concomitant]
     Dosage: 1 MG
     Route: 048
     Dates: start: 20090919, end: 20100413
  6. AZATHIOPRINE [Concomitant]
     Indication: POLYMYOSITIS
     Dosage: UNK
     Dates: start: 20091201, end: 20091201
  7. PARIET [Concomitant]
     Indication: GASTRIC ULCER
     Dosage: 10 MG
     Route: 048
     Dates: start: 20090919, end: 20100413
  8. MUCOSOLVAN [Concomitant]
     Dosage: 45 MG
     Route: 048
     Dates: start: 20090916, end: 20100413
  9. LIPITOR [Concomitant]
     Dosage: 10 MG
     Route: 048
     Dates: start: 20100114, end: 20100413
  10. PREDONINE [Concomitant]
     Dosage: 20 MG
     Route: 041
     Dates: start: 20100313, end: 20100318
  11. NEORAL [Suspect]
     Indication: INTERSTITIAL LUNG DISEASE
     Dosage: 150 MG
     Route: 048
     Dates: start: 20100123, end: 20100313
  12. PREDNISOLONE [Concomitant]
     Dosage: 1 MG
     Route: 048
     Dates: start: 20090919, end: 20100413
  13. CEVIMELINE HYDROCHLORIDE [Concomitant]
     Dosage: 30 MG
     Route: 048
     Dates: start: 20060901, end: 20100413
  14. PROMAC [Concomitant]
     Indication: GASTRITIS PROPHYLAXIS
     Dosage: 150 MG
     Route: 048
     Dates: start: 20100105, end: 20100413
  15. PROMAC [Concomitant]
     Dosage: 150 MG
     Route: 048
     Dates: start: 20100105, end: 20100413
  16. LIPITOR [Concomitant]
     Indication: HYPERCHOLESTEROLAEMIA
     Dosage: 10 MG
     Route: 048
     Dates: start: 20100114, end: 20100413
  17. PREDONINE [Concomitant]
     Indication: POLYMYOSITIS
     Dosage: 20 MG
     Route: 048
     Dates: start: 20090306, end: 20100413
  18. BONALON [Concomitant]
     Indication: OSTEOPOROSIS PROPHYLAXIS
     Dosage: 35 MG
     Route: 048
     Dates: start: 20090919, end: 20100413
  19. CEVIMELINE HYDROCHLORIDE [Concomitant]
     Indication: SJOGREN'S SYNDROME
     Dosage: 30 MG
     Route: 048
     Dates: start: 20060901, end: 20100413
  20. PREDNISOLONE [Concomitant]
     Indication: POLYMYOSITIS
     Dosage: 48 MG PER DAY
     Dates: start: 20100401
  21. BONALON [Concomitant]
     Dosage: 35 MG
     Route: 048
     Dates: start: 20090919, end: 20100413
  22. PREDONINE [Concomitant]
     Dosage: 20 MG
     Route: 048
     Dates: start: 20090306, end: 20100413

REACTIONS (9)
  - PYREXIA [None]
  - EPIGASTRIC DISCOMFORT [None]
  - MYOSITIS [None]
  - BLOOD CREATINE PHOSPHOKINASE INCREASED [None]
  - RENAL IMPAIRMENT [None]
  - ASTHENIA [None]
  - PANCREATITIS ACUTE [None]
  - THROMBOTIC THROMBOCYTOPENIC PURPURA [None]
  - HAEMOLYTIC ANAEMIA [None]
